FAERS Safety Report 8586492-5 (Version None)
Quarter: 2012Q3

REPORT INFORMATION
  Report Type: 
  Country: None (occurrence: None)
  Receive Date: 20120810
  Receipt Date: 20120807
  Transmission Date: 20120928
  Serious: Yes (Other)
  Sender: FDA-Public Use
  Company Number: DE-BRISTOL-MYERS SQUIBB COMPANY-16841017

PATIENT
  Age: 52 Year
  Sex: Female
  Weight: 71 kg

DRUGS (1)
  1. TAXOL [Suspect]
     Indication: BREAST CANCER
     Dosage: 1DF=142 UNITS NOT SPECIFIED
     Route: 042

REACTIONS (1)
  - VISUAL IMPAIRMENT [None]
